FAERS Safety Report 5466939-3 (Version None)
Quarter: 2007Q3

REPORT INFORMATION
  Report Type: 
  Country: None (occurrence: None)
  Receive Date: 20070921
  Receipt Date: 20070921
  Transmission Date: 20080115
  Serious: Yes (Other)
  Sender: FDA-Public Use
  Company Number: None

PATIENT
  Age: 47 Year
  Sex: Female
  Weight: 99.3377 kg

DRUGS (1)
  1. OXYCODONE CR 10MG IVAX/WATSON [Suspect]
     Indication: PAIN
     Dosage: 1 PILL EVERY 12 HOURS PO
     Route: 048
     Dates: start: 20070719, end: 20070813

REACTIONS (4)
  - CONTUSION [None]
  - MIGRAINE [None]
  - PHARMACEUTICAL PRODUCT COMPLAINT [None]
  - WHITE BLOOD CELL COUNT ABNORMAL [None]
